FAERS Safety Report 5398499-X (Version None)
Quarter: 2007Q3

REPORT INFORMATION
  Report Type: 
  Country: None (occurrence: None)
  Receive Date: 20070726
  Receipt Date: 20070109
  Transmission Date: 20080115
  Serious: No
  Sender: FDA-Public Use
  Company Number: US-AMGEN-KDL209197

PATIENT
  Sex: Female

DRUGS (3)
  1. PROCRIT [Suspect]
     Indication: ANAEMIA
     Dates: start: 20061201
  2. LOPRESSOR [Concomitant]
     Dates: start: 20060101
  3. PLAVIX [Concomitant]
     Dates: start: 20060101

REACTIONS (3)
  - ARTHRALGIA [None]
  - BLADDER PAIN [None]
  - KIDNEY INFECTION [None]
